FAERS Safety Report 25030165 (Version 2)
Quarter: 2025Q3

REPORT INFORMATION
  Report Type: Report from Study
  Country: US (occurrence: US)
  Receive Date: 20250303
  Receipt Date: 20250803
  Transmission Date: 20251020
  Serious: Yes (Other)
  Sender: ALEXION PHARMACEUTICALS
  Company Number: US-AstraZeneca-CH-00817275A

PATIENT
  Age: 65 Year
  Sex: Female
  Weight: 107 kg

DRUGS (18)
  1. ACALABRUTINIB [Suspect]
     Active Substance: ACALABRUTINIB
     Indication: Mantle cell lymphoma
     Dosage: 100 MILLIGRAM, BID
  2. AZELASTINE HYDROCHLORIDE [Concomitant]
     Active Substance: AZELASTINE HYDROCHLORIDE
     Route: 065
  3. CALQUENCE [Concomitant]
     Active Substance: ACALABRUTINIB
     Route: 065
  4. CARAFATE [Concomitant]
     Active Substance: SUCRALFATE
     Route: 065
  5. CEPHALEXIN [Concomitant]
     Active Substance: CEPHALEXIN
     Route: 065
  6. CLARITIN [Concomitant]
     Active Substance: LORATADINE
     Route: 065
  7. CLINDAMYCIN PHOSPHATE [Concomitant]
     Active Substance: CLINDAMYCIN PHOSPHATE
     Route: 065
  8. DICLOFENAC SODIUM [Concomitant]
     Active Substance: DICLOFENAC SODIUM
     Route: 065
  9. ENTRESTO [Concomitant]
     Active Substance: SACUBITRIL\VALSARTAN
     Route: 065
  10. EZETIMIBE [Concomitant]
     Active Substance: EZETIMIBE
     Route: 065
  11. HYDROCORTISONE [Concomitant]
     Active Substance: HYDROCORTISONE
     Route: 065
  12. JARDIANCE [Concomitant]
     Active Substance: EMPAGLIFLOZIN
     Route: 065
  13. KETOCONAZOLE [Concomitant]
     Active Substance: KETOCONAZOLE
     Route: 065
  14. NITROGLYCERIN [Concomitant]
     Active Substance: NITROGLYCERIN
     Route: 065
  15. OLMESARTAN MEDOXOMIL [Concomitant]
     Active Substance: OLMESARTAN MEDOXOMIL
     Route: 065
  16. OMEPRAZOLE [Concomitant]
     Active Substance: OMEPRAZOLE
     Route: 065
  17. PROCHLORPERAZINE MALEATE [Concomitant]
     Active Substance: PROCHLORPERAZINE MALEATE
     Route: 065
  18. RITUXAN [Concomitant]
     Active Substance: RITUXIMAB
     Route: 065

REACTIONS (1)
  - Prostatic specific antigen abnormal [Recovering/Resolving]
